FAERS Safety Report 6754513-8 (Version None)
Quarter: 2010Q2

REPORT INFORMATION
  Report Type: 
  Country: None (occurrence: None)
  Receive Date: 20100603
  Receipt Date: 20100517
  Transmission Date: 20101027
  Serious: Yes (Other)
  Sender: FDA-Public Use
  Company Number: JP-CEPHALON-2010003039

PATIENT
  Sex: Male

DRUGS (1)
  1. MODAFINIL [Suspect]
     Route: 048

REACTIONS (3)
  - ABDOMINAL DISCOMFORT [None]
  - ABDOMINAL PAIN UPPER [None]
  - LOSS OF CONSCIOUSNESS [None]
